FAERS Safety Report 4866018-X (Version None)
Quarter: 2005Q4

REPORT INFORMATION
  Report Type: 
  Country: None (occurrence: None)
  Receive Date: 20051221
  Receipt Date: 20051212
  Transmission Date: 20060501
  Serious: Yes (Other)
  Sender: FDA-Public Use
  Company Number: 2005-135780-NL

PATIENT
  Age: 45 Year
  Sex: Female

DRUGS (4)
  1. MIRTAZAPINE [Suspect]
     Dosage: DF
  2. PAROXETINE HYDROCHLORIDE [Suspect]
     Dosage: DF
  3. CYCLOBENZAPRINE HCL [Suspect]
     Dosage: DF
  4. ALCOHOL [Concomitant]

REACTIONS (4)
  - DYSARTHRIA [None]
  - HYPERTENSION [None]
  - SOMNOLENCE [None]
  - VOMITING [None]
